FAERS Safety Report 23935590 (Version 2)
Quarter: 2024Q2

REPORT INFORMATION
  Report Type: Spontaneous
  Country: US (occurrence: US)
  Receive Date: 20240604
  Receipt Date: 20240617
  Transmission Date: 20240715
  Serious: Yes (Other)
  Sender: FDA-Public Use
  Company Number: None

PATIENT
  Age: 29 Year
  Sex: Female

DRUGS (3)
  1. MYCOPHENOLATE MOFETIL [Suspect]
     Active Substance: MYCOPHENOLATE MOFETIL
     Indication: Immunosuppressant drug therapy
     Dosage: UNK
     Route: 065
  2. TACROLIMUS [Suspect]
     Active Substance: TACROLIMUS
     Indication: Immunosuppressant drug therapy
     Dosage: UNK
     Route: 065
  3. PREDNISONE [Suspect]
     Active Substance: PREDNISONE
     Indication: Immunosuppressant drug therapy
     Dosage: UNK
     Route: 065

REACTIONS (9)
  - Chronic allograft nephropathy [Unknown]
  - Glomerulonephritis membranous [Unknown]
  - Arteriosclerosis [Unknown]
  - Diffuse mesangial sclerosis [Unknown]
  - Immunosuppressant drug level increased [Unknown]
  - Focal segmental glomerulosclerosis [Unknown]
  - Renal transplant failure [Unknown]
  - Cytomegalovirus viraemia [Recovered/Resolved]
  - Polyomavirus viraemia [Recovered/Resolved]
